FAERS Safety Report 25552217 (Version 1)
Quarter: 2025Q3

REPORT INFORMATION
  Report Type: Report from Study
  Country: EU (occurrence: EU)
  Receive Date: 20250715
  Receipt Date: 20250715
  Transmission Date: 20251020
  Serious: Yes (Death)
  Sender: TEVA
  Company Number: EU-TEVA-VS-3349931

PATIENT
  Age: 66 Year
  Sex: Male

DRUGS (1)
  1. COPAXONE [Suspect]
     Active Substance: GLATIRAMER ACETATE
     Indication: Clinically isolated syndrome
     Route: 065
     Dates: start: 20140410, end: 2024

REACTIONS (1)
  - Pancreatic carcinoma [Fatal]
